FAERS Safety Report 17755391 (Version 1)
Quarter: 2020Q2

REPORT INFORMATION
  Report Type: Spontaneous
  Country: US (occurrence: US)
  Receive Date: 20200507
  Receipt Date: 20200507
  Transmission Date: 20200714
  Serious: Yes (Hospitalization, Other)
  Sender: FDA-Public Use
  Company Number: US-MICRO LABS LIMITED-ML2020-01486

PATIENT
  Age: 54 Year
  Sex: Female

DRUGS (8)
  1. DIPHENHYDRAMINE HYDROCHLORIDE. [Suspect]
     Active Substance: DIPHENHYDRAMINE HYDROCHLORIDE
     Indication: ANAPHYLACTIC REACTION
  2. METHYLPREDNISOLONE. [Suspect]
     Active Substance: METHYLPREDNISOLONE
     Indication: ANAPHYLACTIC REACTION
  3. METOPROLOL. [Interacting]
     Active Substance: METOPROLOL
     Indication: ANAPHYLACTIC REACTION
  4. EPINEPHRINE. [Suspect]
     Active Substance: EPINEPHRINE
     Route: 030
  5. ALBUTEROL. [Suspect]
     Active Substance: ALBUTEROL
     Indication: ANAPHYLACTIC REACTION
  6. MEPOLIZUMAB [Concomitant]
     Active Substance: MEPOLIZUMAB
  7. TIOTROPIUM BROMIDE [Concomitant]
     Active Substance: TIOTROPIUM BROMIDE
     Indication: ASTHMA
  8. EPINEPHRINE. [Suspect]
     Active Substance: EPINEPHRINE
     Indication: ANAPHYLACTIC REACTION
     Dosage: AUTOINJECTOR INTRAMUSCULAR EPINEPHRINE

REACTIONS (1)
  - Drug ineffective [Unknown]
